FAERS Safety Report 8530491-6 (Version None)
Quarter: 2012Q3

REPORT INFORMATION
  Report Type: 
  Country: None (occurrence: None)
  Receive Date: 20120723
  Receipt Date: 20120312
  Transmission Date: 20120928
  Serious: Yes (Hospitalization, Other)
  Sender: FDA-Public Use
  Company Number: JP-009507513-1207JPN004348

PATIENT

DRUGS (6)
  1. FOSAMAX [Suspect]
     Dosage: DAILY DOSAGE UNKNOWN
     Route: 048
  2. OPALMON [Concomitant]
     Dosage: DAILY DOSAGE UNKNOWN
     Route: 048
  3. OSTELUC [Concomitant]
     Dosage: DAILY DOSAGE UNKNOWN
     Route: 048
  4. ONEALFA [Concomitant]
     Dosage: DAILY DOSAGE UNKNOWN
     Route: 048
  5. GLAKAY [Concomitant]
     Dosage: DAILY DOSAGE UNKNOWN
     Route: 048
  6. APLACE [Concomitant]
     Dosage: DAILY DOSAGE UNKNOWN
     Route: 048

REACTIONS (1)
  - FEMUR FRACTURE [None]
